FAERS Safety Report 4463813-6 (Version None)
Quarter: 2004Q3

REPORT INFORMATION
  Report Type: 
  Country: None (occurrence: None)
  Receive Date: 20040929
  Receipt Date: 20040914
  Transmission Date: 20050211
  Serious: Yes (Death, Life-Threatening, Other)
  Sender: FDA-Public Use
  Company Number: PL-2004-030908

PATIENT
  Age: 33 Year
  Sex: Male

DRUGS (1)
  1. ULTRAVIST 370 [Suspect]
     Indication: UROGRAPHY
     Dosage: 50 MI, INTRAVENOUS
     Route: 042
     Dates: start: 20040825, end: 20040825

REACTIONS (10)
  - ABSCESS [None]
  - ANAPHYLACTIC SHOCK [None]
  - CARDIAC ANEURYSM [None]
  - CARDIAC ARREST [None]
  - CARDIOPULMONARY FAILURE [None]
  - DIVERTICULAR PERFORATION [None]
  - PERITONEAL HAEMORRHAGE [None]
  - SHOCK HAEMORRHAGIC [None]
  - SYNCOPE [None]
  - THROMBOSIS [None]
